FAERS Safety Report 20004469 (Version 2)
Quarter: 2021Q4

REPORT INFORMATION
  Report Type: Other
  Country: CN (occurrence: None)
  Receive Date: 20211028
  Receipt Date: 20211119
  Transmission Date: 20220303
  Serious: Yes (Other)
  Sender: FDA-Public Use
  Company Number: CN-ROCHE-2942129

PATIENT

DRUGS (2)
  1. BEVACIZUMAB [Suspect]
     Active Substance: BEVACIZUMAB
     Indication: Ovarian epithelial cancer recurrent
     Route: 065
  2. DOXORUBICIN [Suspect]
     Active Substance: DOXORUBICIN
     Indication: Ovarian epithelial cancer recurrent
     Route: 065

REACTIONS (8)
  - Cardiotoxicity [Unknown]
  - Myelosuppression [Unknown]
  - Liver injury [Unknown]
  - Renal injury [Unknown]
  - Hypersensitivity [Unknown]
  - Embolism [Unknown]
  - Haemorrhage [Unknown]
  - Gastrointestinal disorder [Unknown]
